FAERS Safety Report 9795574 (Version 3)
Quarter: 2014Q1

REPORT INFORMATION
  Report Type: Report from Study
  Country: US (occurrence: US)
  Receive Date: 20140103
  Receipt Date: 20140113
  Transmission Date: 20141002
  Serious: Yes (Death, Hospitalization)
  Sender: FDA-Public Use
  Company Number: US-ROCHE-1315944

PATIENT
  Age: 87 Year
  Sex: Female

DRUGS (3)
  1. XELODA [Suspect]
     Indication: OVARIAN CANCER METASTATIC
     Route: 048
     Dates: start: 201308
  2. WARFARIN [Concomitant]
  3. K-DUR [Concomitant]

REACTIONS (5)
  - Death [Fatal]
  - Full blood count decreased [Unknown]
  - Cardiac disorder [Unknown]
  - Renal disorder [Unknown]
  - Lung disorder [Unknown]
